FAERS Safety Report 16463005 (Version 1)
Quarter: 2019Q2

REPORT INFORMATION
  Report Type: Spontaneous
  Country: US (occurrence: US)
  Receive Date: 20190621
  Receipt Date: 20190621
  Transmission Date: 20190711
  Serious: No
  Sender: FDA-Public Use
  Company Number: US-009507513-1905USA012419

PATIENT
  Age: 38 Year
  Sex: Female

DRUGS (9)
  1. GANIRELIX ACETATE. [Suspect]
     Active Substance: GANIRELIX ACETATE
     Dosage: 250 UGM, DAILY
     Route: 058
     Dates: start: 20190517
  2. LEUPROLIDE [Concomitant]
     Active Substance: LEUPROLIDE
  3. FLUTICASONE. [Concomitant]
     Active Substance: FLUTICASONE
  4. MENOPUR [Concomitant]
     Active Substance: FOLLITROPIN\LUTEINIZING HORMONE
  5. FOLLISTIM [Suspect]
     Active Substance: FOLLITROPIN
     Indication: INFERTILITY FEMALE
     Dosage: 300 UNITS, DAILY
     Route: 058
     Dates: start: 20190517
  6. DULOXETINE HYDROCHLORIDE. [Concomitant]
     Active Substance: DULOXETINE HYDROCHLORIDE
  7. GANIRELIX ACETATE. [Suspect]
     Active Substance: GANIRELIX ACETATE
     Dosage: 250 UGM, DAILY
     Route: 058
     Dates: start: 20190517
  8. AZITHROMYCIN ANHYDROUS. [Concomitant]
     Active Substance: AZITHROMYCIN ANHYDROUS
  9. CETIRIZINE HYDROCHLORIDE. [Concomitant]
     Active Substance: CETIRIZINE HYDROCHLORIDE

REACTIONS (1)
  - Nausea [Unknown]

NARRATIVE: CASE EVENT DATE: 20190517
